FAERS Safety Report 17875472 (Version 3)
Quarter: 2020Q3

REPORT INFORMATION
  Report Type: Spontaneous
  Country: US (occurrence: US)
  Receive Date: 20200609
  Receipt Date: 20200713
  Transmission Date: 20201103
  Serious: Yes (Other)
  Sender: FDA-Public Use
  Company Number: US-INTRA-CELLULAR THERAPIES, INC.-2020ICT00024

PATIENT
  Age: 21 Year
  Sex: Male
  Weight: 161 kg

DRUGS (5)
  1. MONTELUKAST [Concomitant]
     Active Substance: MONTELUKAST SODIUM
  2. WARFARIN [Concomitant]
     Active Substance: WARFARIN
  3. FLUOXETINE [Concomitant]
     Active Substance: FLUOXETINE HYDROCHLORIDE
  4. CAPLYTA [Suspect]
     Active Substance: LUMATEPERONE
     Indication: SCHIZOPHRENIA
     Dosage: 42 MG, 1X/DAY
     Route: 048
     Dates: start: 20200522, end: 20200602
  5. GUANFACINE. [Concomitant]
     Active Substance: GUANFACINE

REACTIONS (3)
  - Insomnia [Recovered/Resolved]
  - Drug ineffective [Recovered/Resolved]
  - Hallucination, auditory [Recovering/Resolving]

NARRATIVE: CASE EVENT DATE: 20200522
